FAERS Safety Report 25100110 (Version 2)
Quarter: 2025Q1

REPORT INFORMATION
  Report Type: Report from Study
  Country: US (occurrence: US)
  Receive Date: 20250320
  Receipt Date: 20250325
  Transmission Date: 20250409
  Serious: Yes (Hospitalization)
  Sender: JOHNSON AND JOHNSON
  Company Number: US-JNJFOC-20250259952

PATIENT
  Age: 41 Year
  Sex: Male
  Weight: 86.182 kg

DRUGS (8)
  1. VELETRI [Suspect]
     Active Substance: EPOPROSTENOL
     Indication: Pulmonary arterial hypertension
     Route: 042
  2. VELETRI [Suspect]
     Active Substance: EPOPROSTENOL
     Route: 042
  3. VELETRI [Suspect]
     Active Substance: EPOPROSTENOL
     Route: 042
  4. OPSUMIT [Suspect]
     Active Substance: MACITENTAN
     Indication: Product used for unknown indication
     Route: 048
  5. TADALAFIL [Concomitant]
     Active Substance: TADALAFIL
  6. ELIQUIS [Concomitant]
     Active Substance: APIXABAN
  7. AMBRISENTAN [Concomitant]
     Active Substance: AMBRISENTAN
  8. WINREVAIR [Concomitant]
     Active Substance: SOTATERCEPT-CSRK

REACTIONS (12)
  - Peripheral swelling [Unknown]
  - Blood creatinine increased [Unknown]
  - Oxygen therapy [Unknown]
  - Decreased appetite [Unknown]
  - Pulmonary arterial hypertension [Unknown]
  - Lethargy [Unknown]
  - Headache [Unknown]
  - Fatigue [Unknown]
  - Urine output decreased [Unknown]
  - Dyspnoea exertional [Unknown]
  - Weight increased [Unknown]
  - Chills [Unknown]

NARRATIVE: CASE EVENT DATE: 20250217
